FAERS Safety Report 20430511 (Version 1)
Quarter: 2022Q1

REPORT INFORMATION
  Report Type: Report from Study
  Country: FR (occurrence: FR)
  Receive Date: 20220204
  Receipt Date: 20220204
  Transmission Date: 20220423
  Serious: Yes (Hospitalization)
  Sender: FDA-Public Use
  Company Number: FR-SERVIER-S20009881

PATIENT

DRUGS (8)
  1. ONCASPAR [Suspect]
     Active Substance: PEGASPARGASE
     Indication: Acute lymphocytic leukaemia
     Dosage: 2175 IU, QD, D15, D43
     Route: 042
     Dates: start: 20191129, end: 20191231
  2. TN UNSPECIFIED [Concomitant]
     Indication: Acute lymphocytic leukaemia
     Dosage: 52 MG, D1-14, D29-42
     Route: 048
     Dates: start: 20191115, end: 20191231
  3. TN UNSPECIFIED [Concomitant]
     Indication: Acute lymphocytic leukaemia
     Dosage: 880 MG, D1-D29
     Route: 042
     Dates: start: 20191115, end: 20191217
  4. TN UNSPECIFIED [Concomitant]
     Indication: Acute lymphocytic leukaemia
     Dosage: 1.3 MG, D15, D22, D43
     Route: 042
     Dates: start: 20191129
  5. TN UNSPECIFIED [Concomitant]
     Indication: Acute lymphocytic leukaemia
     Dosage: 65 MG, D3-6, D11-14, D31-34, D38-41
     Route: 042
     Dates: start: 20191117, end: 20191229
  6. TN UNSPECIFIED [Concomitant]
     Dosage: 30 MG, D5, D31
     Route: 037
     Dates: start: 20191119, end: 20191219
  7. TN UNSPECIFIED [Concomitant]
     Indication: Acute lymphocytic leukaemia
     Dosage: 12 MG, D5, D31
     Route: 037
     Dates: start: 20191119, end: 20191219
  8. TN UNSPECIFIED [Concomitant]
     Indication: Acute lymphocytic leukaemia
     Dosage: 15 MG, D5, D31
     Route: 037
     Dates: start: 20191119, end: 20191219

REACTIONS (2)
  - Skin reaction [Recovered/Resolved]
  - Respiratory symptom [Recovered/Resolved]

NARRATIVE: CASE EVENT DATE: 20191231
